FAERS Safety Report 24432161 (Version 1)
Quarter: 2024Q4

REPORT INFORMATION
  Report Type: Spontaneous
  Country: US (occurrence: US)
  Receive Date: 20241014
  Receipt Date: 20241014
  Transmission Date: 20250115
  Serious: Yes (Life-Threatening, Hospitalization, Other)
  Sender: HIKMA
  Company Number: US-MLMSERVICE-20240923-PI202001-00271-1

PATIENT
  Age: 64 Year
  Sex: Male

DRUGS (2)
  1. PREDNISONE [Suspect]
     Active Substance: PREDNISONE
     Indication: Warm autoimmune haemolytic anaemia
     Dosage: SYSTEMIC STEROID FOR THE PAST FOUR MONTHS
     Route: 065
  2. ENTECAVIR [Concomitant]
     Active Substance: ENTECAVIR
     Indication: Hepatitis B core antibody positive
     Dosage: UNKNOWN
     Route: 065

REACTIONS (7)
  - Thrombocytopenia [Unknown]
  - Disseminated cryptococcosis [Unknown]
  - Fungal peritonitis [Unknown]
  - Atrial fibrillation [Unknown]
  - Meningitis cryptococcal [Unknown]
  - Fungal sepsis [Unknown]
  - Septic shock [Unknown]
